FAERS Safety Report 4307602-1 (Version None)
Quarter: 2004Q1

REPORT INFORMATION
  Report Type: 
  Country: None (occurrence: None)
  Receive Date: 20040225
  Receipt Date: 20031111
  Transmission Date: 20041129
  Serious: Yes (Other)
  Sender: FDA-Public Use
  Company Number: WAES  0311USA01218

PATIENT
  Age: 37 Year
  Sex: Male
  Weight: 153.3158 kg

DRUGS (5)
  1. ZOCOR [Suspect]
     Indication: HYPERLIPIDAEMIA
     Dosage: 20; 80 MG/DAILY/PO
     Route: 048
     Dates: end: 20031006
  2. ZOCOR [Suspect]
     Indication: HYPERLIPIDAEMIA
     Dosage: 20; 80 MG/DAILY/PO
     Route: 048
     Dates: start: 20011226
  3. CELEBREX [Concomitant]
  4. ULTRAM [Concomitant]
  5. WELLBUTRIN SR [Concomitant]

REACTIONS (3)
  - ASPARTATE AMINOTRANSFERASE INCREASED [None]
  - BLOOD CREATINE PHOSPHOKINASE INCREASED [None]
  - MYALGIA [None]
